FAERS Safety Report 19034258 (Version 1)
Quarter: 2021Q1

REPORT INFORMATION
  Report Type: Spontaneous
  Country: JP (occurrence: JP)
  Receive Date: 20210319
  Receipt Date: 20210319
  Transmission Date: 20210420
  Serious: Yes (Other)
  Sender: FDA-Public Use
  Company Number: JP-ELI_LILLY_AND_COMPANY-JP201808002217

PATIENT
  Age: 69 Year
  Sex: Male
  Weight: 52 kg

DRUGS (12)
  1. AMLODIPINE [Concomitant]
     Active Substance: AMLODIPINE BESYLATE
     Indication: HYPERTENSION
     Dosage: 5 MG, DAILY
     Route: 048
  2. OLMETEC [Concomitant]
     Active Substance: OLMESARTAN MEDOXOMIL
     Indication: HYPERTENSION
     Dosage: 20 MG, DAILY
     Route: 048
  3. LIVALO [Concomitant]
     Active Substance: PITAVASTATIN CALCIUM
     Indication: PANCREATIC CARCINOMA
     Dosage: 2 MG, DAILY
     Route: 048
  4. SEIBULE [Concomitant]
     Active Substance: MIGLITOL
     Dosage: 50 MG, TID
     Route: 048
  5. TRAMADOL HYDROCHLORIDE. [Suspect]
     Active Substance: TRAMADOL HYDROCHLORIDE
     Indication: LUMBAR SPINAL STENOSIS
     Dosage: 50 MG, TID
     Route: 048
     Dates: start: 20180528
  6. GABALON [Concomitant]
     Active Substance: BACLOFEN
     Indication: LUMBAR SPINAL STENOSIS
     Dosage: 10 MG, TID
     Route: 048
     Dates: start: 20180518
  7. GOSHAJINKIGAN [Concomitant]
     Active Substance: HERBALS
     Indication: LUMBAR SPINAL STENOSIS
     Dosage: 5 MG, BID
     Route: 048
     Dates: start: 20180223, end: 20180704
  8. PLAVIX [Concomitant]
     Active Substance: CLOPIDOGREL BISULFATE
     Indication: CEREBELLAR INFARCTION
     Dosage: 75 MG, DAILY
     Route: 048
  9. JANUVIA [Concomitant]
     Active Substance: SITAGLIPTIN PHOSPHATE
     Indication: DIABETES MELLITUS
     Dosage: 50 MG, DAILY
     Route: 048
  10. DULOXETINE HYDROCHLORIDE. [Suspect]
     Active Substance: DULOXETINE HYDROCHLORIDE
     Indication: LUMBAR SPINAL STENOSIS
     Dosage: 20 MG, DAILY
     Route: 048
     Dates: start: 20180611, end: 20180704
  11. TAKEPRON [Concomitant]
     Active Substance: LANSOPRAZOLE
     Dosage: 15 MG, DAILY
     Route: 048
  12. GLIBENCLAMIDE [Concomitant]
     Active Substance: GLYBURIDE
     Indication: DIABETES MELLITUS
     Dosage: 2.5 MG, DAILY
     Route: 048

REACTIONS (10)
  - Agitation [Recovered/Resolved]
  - Musculoskeletal stiffness [Recovered/Resolved]
  - Dysarthria [Recovered/Resolved]
  - Restlessness [Recovered/Resolved]
  - Anxiety [Recovered/Resolved]
  - Dyspnoea [Recovered/Resolved]
  - Serotonin syndrome [Recovered/Resolved]
  - Tremor [Recovered/Resolved]
  - Hyperhidrosis [Recovered/Resolved]
  - Pyrexia [Recovered/Resolved]

NARRATIVE: CASE EVENT DATE: 20180704
